FAERS Safety Report 26045060 (Version 1)
Quarter: 2025Q4

REPORT INFORMATION
  Report Type: Report from Study
  Country: EU (occurrence: EU)
  Receive Date: 20251114
  Receipt Date: 20251114
  Transmission Date: 20260118
  Serious: Yes (Life-Threatening, Hospitalization, Disabling)
  Sender: TEVA
  Company Number: None

PATIENT
  Age: 68 Year
  Sex: Female
  Weight: 56 kg

DRUGS (7)
  1. CAPECITABINE [Suspect]
     Active Substance: CAPECITABINE
     Indication: Breast cancer
     Dosage: DAILY DOSE: 1650 MG/M2 MILLIGRAM(S)/SQ. METER EVERY DAY
     Route: 048
     Dates: start: 20110609, end: 20110701
  2. CAPECITABINE [Suspect]
     Active Substance: CAPECITABINE
     Indication: Breast cancer
     Dosage: DAILY DOSE: 1650 MG/M2 MILLIGRAM(S)/SQ. METER EVERY DAY
     Route: 048
     Dates: end: 20110704
  3. BISOPROLOL [Concomitant]
     Active Substance: BISOPROLOL
     Indication: Hypertension
     Dosage: DAILY DOSE: 2.5 MG MILLIGRAM(S) EVERY DAY
     Route: 048
     Dates: start: 1991
  4. LEVOTHYROXINE [Concomitant]
     Active Substance: LEVOTHYROXINE
     Indication: Thyroidectomy
     Dosage: DAILY DOSE: 24 MG MILLIGRAM(S) EVERY DAY
     Route: 048
     Dates: start: 2005, end: 20110728
  5. LEVOTHYROXINE [Concomitant]
     Active Substance: LEVOTHYROXINE
     Indication: Thyroidectomy
     Route: 048
     Dates: start: 20110728
  6. DOCETAXEL [Suspect]
     Active Substance: DOCETAXEL
     Indication: Breast cancer
     Dosage: DAILY DOSE: 122.25 MG MILLIGRAM(S) EVERY
     Route: 042
     Dates: start: 20110630, end: 20110630
  7. DOCETAXEL [Suspect]
     Active Substance: DOCETAXEL
     Indication: Breast cancer
     Dosage: DAILY DOSE: 122.25 MG MILLIGRAM(S) EVERY
     Route: 042
     Dates: start: 20110609, end: 20110609

REACTIONS (9)
  - Atrial fibrillation [Recovered/Resolved]
  - Febrile neutropenia [Recovered/Resolved]
  - Escherichia urinary tract infection [Recovered/Resolved]
  - Weight decreased [Not Recovered/Not Resolved]
  - Urinary tract infection bacterial [Recovered/Resolved]
  - Pancreatic atrophy [Recovered/Resolved]
  - Renal failure [Recovered/Resolved]
  - Tachycardia [Recovered/Resolved]
  - Large intestine infection [Recovered/Resolved]

NARRATIVE: CASE EVENT DATE: 20110704
